FAERS Safety Report 5099170-4 (Version None)
Quarter: 2006Q3

REPORT INFORMATION
  Report Type: 
  Country: None (occurrence: None)
  Receive Date: 20060728
  Receipt Date: 20060526
  Transmission Date: 20061208
  Serious: No
  Sender: FDA-Public Use
  Company Number: COT_0612_2006

PATIENT
  Age: 56 Year
  Sex: Female
  Weight: 76.2043 kg

DRUGS (8)
  1. VENTAVIS [Suspect]
     Indication: PULMONARY HYPERTENSION
     Dosage: 5 MCG 6XD IH
     Route: 055
     Dates: start: 20060428, end: 20060622
  2. FLOVENT [Suspect]
     Indication: CHRONIC OBSTRUCTIVE PULMONARY DISEASE
     Dosage: 110 MCG 2X/DAY IH
     Route: 055
  3. SYNTHROID [Concomitant]
  4. SINGULAIR [Concomitant]
  5. ALLOPURINOL [Concomitant]
  6. OXYGEN [Concomitant]
  7. NEXIUM [Concomitant]
  8. SILDENAFIL [Concomitant]

REACTIONS (2)
  - DIZZINESS [None]
  - MIGRAINE [None]
